FAERS Safety Report 4487690-2 (Version None)
Quarter: 2004Q4

REPORT INFORMATION
  Report Type: 
  Country: None (occurrence: None)
  Receive Date: 20041028
  Receipt Date: 20041001
  Transmission Date: 20050328
  Serious: Yes (Hospitalization)
  Sender: FDA-Public Use
  Company Number: AU-ABBOTT-04P-008-0276302-00

PATIENT
  Sex: Male
  Weight: 97 kg

DRUGS (16)
  1. SIBUTRAMINE (BLINDED) [Suspect]
     Indication: OBESITY
     Route: 048
     Dates: start: 20040707
  2. GEMFIBROZIL [Concomitant]
     Indication: HYPERLIPIDAEMIA
     Dates: start: 19960101
  3. ATORVASTATIN CALCIUM [Concomitant]
     Indication: HYPERCHOLESTEROLAEMIA
     Dates: start: 19900101
  4. GLICLAZIDE [Concomitant]
     Indication: DIABETES MELLITUS
     Dates: start: 20040101
  5. METFORMIN HCL [Concomitant]
     Indication: DIABETES MELLITUS NON-INSULIN-DEPENDENT
     Dates: start: 19960101
  6. FOLIC ACID [Concomitant]
     Indication: FOLATE DEFICIENCY
     Dates: start: 20020101
  7. DIGOXIN [Concomitant]
     Indication: ATRIAL FIBRILLATION
     Dates: start: 19900101
  8. METOPROLOL [Concomitant]
     Indication: ATRIAL FIBRILLATION
     Dates: start: 20040301
  9. WARFARIN SODIUM [Concomitant]
     Indication: ATRIAL FIBRILLATION
     Dates: start: 19960101
  10. LORATADINE [Concomitant]
     Indication: SEASONAL ALLERGY
  11. LORATADINE [Concomitant]
     Indication: UPPER RESPIRATORY TRACT INFECTION
     Dates: start: 20040604
  12. CLAVULIN [Concomitant]
     Indication: BRONCHITIS
     Dates: start: 20040503, end: 20040513
  13. BIMATOPROST [Concomitant]
     Indication: GLAUCOMA
     Route: 057
     Dates: start: 20000101
  14. ROFECOXIB [Concomitant]
     Indication: OSTEOARTHRITIS
     Dates: start: 20030101
  15. IRBESARTAN [Concomitant]
     Indication: HYPERTENSION
     Dates: start: 19960101
  16. TEGAFUR [Concomitant]
     Indication: IRON DEFICIENCY
     Dates: start: 20020101

REACTIONS (3)
  - HEPATIC FIBROSIS [None]
  - ILEUS [None]
  - RENAL FAILURE [None]
